FAERS Safety Report 8050203-2 (Version None)
Quarter: 2012Q1

REPORT INFORMATION
  Report Type: 
  Country: None (occurrence: None)
  Receive Date: 20120117
  Receipt Date: 20120109
  Transmission Date: 20120608
  Serious: Yes (Other)
  Sender: FDA-Public Use
  Company Number: CHPA2012US000785

PATIENT
  Age: 62 Year
  Sex: Female

DRUGS (1)
  1. EXCEDRIN EXTRA STRENGTH CAPLETS [Suspect]
     Indication: BACK PAIN
     Dosage: 2 TO 4 DF, DAILY
     Route: 048
     Dates: start: 20080101, end: 20090101

REACTIONS (5)
  - RENAL FAILURE [None]
  - EXPIRED DRUG ADMINISTERED [None]
  - OFF LABEL USE [None]
  - NEPHROPATHY [None]
  - INCORRECT DRUG ADMINISTRATION DURATION [None]
